FAERS Safety Report 11201922 (Version 1)
Quarter: 2015Q2

REPORT INFORMATION
  Report Type: Spontaneous
  Country: US (occurrence: None)
  Receive Date: 20150617
  Receipt Date: 20150617
  Transmission Date: 20150821
  Serious: No
  Sender: FDA-Public Use
  Company Number: None

PATIENT
  Sex: Male

DRUGS (9)
  1. TAMSULOSIN [Concomitant]
     Active Substance: TAMSULOSIN
  2. HYDROCHOLOROT [Concomitant]
  3. LOSARTAN POT [Concomitant]
  4. REBIF [Concomitant]
     Active Substance: INTERFERON BETA-1A
  5. FINASTERIDE. [Concomitant]
     Active Substance: FINASTERIDE
  6. LEVOTHYROXIN [Concomitant]
     Active Substance: LEVOTHYROXINE
  7. REBIF [Suspect]
     Active Substance: INTERFERON BETA-1A
     Indication: MULTIPLE SCLEROSIS
     Route: 058
     Dates: start: 20080315
  8. ALCOHOL PREP [Concomitant]
     Active Substance: ISOPROPYL ALCOHOL
  9. SHARPS [Concomitant]

REACTIONS (1)
  - Injection site bruising [None]
